FAERS Safety Report 25825398 (Version 1)
Quarter: 2025Q3

REPORT INFORMATION
  Report Type: Spontaneous
  Country: GB (occurrence: GB)
  Receive Date: 20250919
  Receipt Date: 20250919
  Transmission Date: 20251021
  Serious: Yes (Other)
  Sender: ALEXION PHARMACEUTICALS
  Company Number: None

PATIENT
  Age: 60 Year
  Sex: Female

DRUGS (2)
  1. SYMBICORT [Suspect]
     Active Substance: BUDESONIDE\FORMOTEROL FUMARATE DIHYDRATE
     Route: 065
     Dates: start: 20250805, end: 20250904
  2. LYMECYCLINE [Concomitant]
     Active Substance: LYMECYCLINE
     Indication: Adverse drug reaction

REACTIONS (1)
  - Wheezing [Recovered/Resolved with Sequelae]

NARRATIVE: CASE EVENT DATE: 20250805
